FAERS Safety Report 5487605-4 (Version None)
Quarter: 2007Q4

REPORT INFORMATION
  Report Type: 
  Country: None (occurrence: None)
  Receive Date: 20071016
  Receipt Date: 20071009
  Transmission Date: 20080405
  Serious: Yes (Hospitalization)
  Sender: FDA-Public Use
  Company Number: US-ELI_LILLY_AND_COMPANY-US200710002595

PATIENT
  Age: 71 Year
  Sex: Female

DRUGS (1)
  1. HUMULIN R [Suspect]
     Dosage: SLIDING SCALE
     Dates: start: 19750101

REACTIONS (3)
  - ANKLE FRACTURE [None]
  - BLISTER [None]
  - RENAL TRANSPLANT [None]
